FAERS Safety Report 7102848-1 (Version None)
Quarter: 2010Q4

REPORT INFORMATION
  Report Type: 
  Country: None (occurrence: None)
  Receive Date: 20101115
  Receipt Date: 20101109
  Transmission Date: 20110411
  Serious: Yes (Death)
  Sender: FDA-Public Use
  Company Number: GB-CELGENEUS-167-50794-10111466

PATIENT
  Age: 64 Year

DRUGS (1)
  1. VIDAZA [Suspect]
     Route: 065
     Dates: start: 20090901, end: 20100801

REACTIONS (1)
  - DEATH [None]
